FAERS Safety Report 16603157 (Version 1)
Quarter: 2019Q3

REPORT INFORMATION
  Report Type: Spontaneous
  Country: US (occurrence: US)
  Receive Date: 20190721
  Receipt Date: 20190721
  Transmission Date: 20191004
  Serious: Yes (Hospitalization)
  Sender: FDA-Public Use
  Company Number: US-PIRAMAL ENTERPRISES LIMITED-2019-PEL-000213

PATIENT

DRUGS (1)
  1. GABLOFEN [Suspect]
     Active Substance: BACLOFEN
     Indication: MUSCLE SPASTICITY
     Dosage: 500 MICROGRAM PER DAY
     Route: 037

REACTIONS (5)
  - Device leakage [Unknown]
  - Hypotonia [Unknown]
  - Device kink [Unknown]
  - Overdose [Unknown]
  - Somnolence [Unknown]
